FAERS Safety Report 7957560-3 (Version None)
Quarter: 2011Q4

REPORT INFORMATION
  Report Type: 
  Country: None (occurrence: None)
  Receive Date: 20111205
  Receipt Date: 20111128
  Transmission Date: 20120403
  Serious: Yes (Hospitalization)
  Sender: FDA-Public Use
  Company Number: JP-GLAXOSMITHKLINE-B0761922A

PATIENT
  Sex: Female

DRUGS (5)
  1. DEPAKENE [Concomitant]
     Indication: DEPRESSION
     Route: 048
     Dates: end: 20111108
  2. SEPAZON [Concomitant]
     Indication: DEPRESSION
     Route: 048
     Dates: end: 20111108
  3. ABILIFY [Concomitant]
     Indication: DEPRESSION
     Route: 048
     Dates: end: 20111108
  4. LAMICTAL [Suspect]
     Indication: DEPRESSION
     Dosage: 50MG PER DAY
     Route: 048
     Dates: start: 20111019, end: 20111108
  5. TOLEDOMIN [Concomitant]
     Indication: DEPRESSION
     Route: 048
     Dates: end: 20111108

REACTIONS (19)
  - EYE DISCHARGE [None]
  - PAPULE [None]
  - C-REACTIVE PROTEIN INCREASED [None]
  - ASPARTATE AMINOTRANSFERASE DECREASED [None]
  - ALANINE AMINOTRANSFERASE INCREASED [None]
  - OCULAR HYPERAEMIA [None]
  - ORAL MUCOSA EROSION [None]
  - PYREXIA [None]
  - WHITE BLOOD CELL COUNT INCREASED [None]
  - NEUTROPHIL COUNT INCREASED [None]
  - GAMMA-GLUTAMYLTRANSFERASE INCREASED [None]
  - CONJUNCTIVITIS [None]
  - LIP EROSION [None]
  - STEVENS-JOHNSON SYNDROME [None]
  - DRUG RASH WITH EOSINOPHILIA AND SYSTEMIC SYMPTOMS [None]
  - SCAB [None]
  - LYMPHOCYTE COUNT INCREASED [None]
  - EYE PRURITUS [None]
  - LYMPHADENOPATHY [None]
